FAERS Safety Report 7556690-8 (Version None)
Quarter: 2011Q2

REPORT INFORMATION
  Report Type: 
  Country: None (occurrence: None)
  Receive Date: 20110620
  Receipt Date: 20110615
  Transmission Date: 20111010
  Serious: Yes (Hospitalization)
  Sender: FDA-Public Use
  Company Number: KR-PFIZER INC-2011130708

PATIENT

DRUGS (1)
  1. TORISEL [Suspect]

REACTIONS (1)
  - ANGINA PECTORIS [None]
